FAERS Safety Report 23300979 (Version 1)
Quarter: 2023Q4

REPORT INFORMATION
  Report Type: Spontaneous
  Country: US (occurrence: US)
  Receive Date: 20231215
  Receipt Date: 20231215
  Transmission Date: 20240110
  Serious: Yes (Other)
  Sender: FDA-Public Use
  Company Number: US-BEH-2023166497

PATIENT
  Age: 47 Year
  Sex: Female

DRUGS (34)
  1. HIZENTRA [Suspect]
     Active Substance: HUMAN IMMUNOGLOBULIN G
     Indication: Immunodeficiency common variable
     Dosage: 13 GRAM, QW
     Route: 058
     Dates: start: 20231121
  2. HIZENTRA [Suspect]
     Active Substance: HUMAN IMMUNOGLOBULIN G
     Dosage: UNK
     Route: 058
     Dates: start: 20231204
  3. AMBIEN [Concomitant]
     Active Substance: ZOLPIDEM TARTRATE
  4. AMBIEN CR [Concomitant]
     Active Substance: ZOLPIDEM TARTRATE
  5. BUMEX [Concomitant]
     Active Substance: BUMETANIDE
  6. BUSPIRONE [Concomitant]
     Active Substance: BUSPIRONE HYDROCHLORIDE
  7. CARAFATE [Concomitant]
     Active Substance: SUCRALFATE
  8. CARDIZEM CD [Concomitant]
     Active Substance: DILTIAZEM HYDROCHLORIDE
  9. DEXILANT [Concomitant]
     Active Substance: DEXLANSOPRAZOLE
  10. DUONEB [Concomitant]
     Active Substance: ALBUTEROL SULFATE\IPRATROPIUM BROMIDE
  11. EPINEPHRINE [Concomitant]
     Active Substance: EPINEPHRINE
  12. FERROUS GLUCONATE [Concomitant]
     Active Substance: FERROUS GLUCONATE
  13. JARDIANCE [Concomitant]
     Active Substance: EMPAGLIFLOZIN
  14. LASIX [Concomitant]
     Active Substance: FUROSEMIDE
  15. LEVOTHYROXINE [Concomitant]
     Active Substance: LEVOTHYROXINE
  16. LIPITOR [Concomitant]
     Active Substance: ATORVASTATIN CALCIUM
  17. MELATONIN [Concomitant]
     Active Substance: MELATONIN
  18. METHENAMINE [Concomitant]
     Active Substance: METHENAMINE
  19. METOCLOPRAMIDE [Concomitant]
     Active Substance: METOCLOPRAMIDE
  20. METOPROLOL TARTRATE [Concomitant]
     Active Substance: METOPROLOL TARTRATE
  21. MIRTAZAPINE [Concomitant]
     Active Substance: MIRTAZAPINE
  22. MYRBETRIQ [Concomitant]
     Active Substance: MIRABEGRON
  23. ONDANSETRON [Concomitant]
     Active Substance: ONDANSETRON
  24. PLAVIX [Concomitant]
     Active Substance: CLOPIDOGREL BISULFATE
  25. PRAMIPEXOLE [Concomitant]
     Active Substance: PRAMIPEXOLE
  26. PRILOSEC [Concomitant]
     Active Substance: OMEPRAZOLE MAGNESIUM
  27. OMEPRAZOLE [Concomitant]
     Active Substance: OMEPRAZOLE
  28. REGLAN [Concomitant]
     Active Substance: METOCLOPRAMIDE HYDROCHLORIDE
  29. SINGULAIR [Concomitant]
     Active Substance: MONTELUKAST SODIUM
  30. TEMAZEPAM [Concomitant]
     Active Substance: TEMAZEPAM
  31. TOVIAZ [Concomitant]
     Active Substance: FESOTERODINE FUMARATE
  32. TRAZODONE [Concomitant]
     Active Substance: TRAZODONE HYDROCHLORIDE
  33. VENTOLIN HFA [Concomitant]
     Active Substance: ALBUTEROL SULFATE
  34. XARELTO [Concomitant]
     Active Substance: RIVAROXABAN

REACTIONS (1)
  - Dyspnoea [Not Recovered/Not Resolved]

NARRATIVE: CASE EVENT DATE: 20231204
